FAERS Safety Report 6783089-4 (Version None)
Quarter: 2010Q2

REPORT INFORMATION
  Report Type: 
  Country: None (occurrence: None)
  Receive Date: 20100622
  Receipt Date: 20100611
  Transmission Date: 20101027
  Serious: Yes (Life-Threatening, Hospitalization)
  Sender: FDA-Public Use
  Company Number: US-JNJFOC-20100504470

PATIENT
  Age: 14 Month
  Sex: Female
  Weight: 10.43 kg

DRUGS (4)
  1. CHILDREN'S MOTRIN [Suspect]
     Route: 048
  2. CHILDREN'S MOTRIN [Suspect]
     Indication: EAR INFECTION
     Dosage: 4-6 HOURS
     Route: 048
  3. TYLENOL [Suspect]
     Route: 048
  4. TYLENOL [Suspect]
     Indication: EAR INFECTION
     Dosage: 4-6 HOURS
     Route: 048

REACTIONS (3)
  - BLOOD GLUCOSE DECREASED [None]
  - PRODUCT QUALITY ISSUE [None]
  - WRONG DRUG ADMINISTERED [None]
